FAERS Safety Report 5776676-3 (Version None)
Quarter: 2008Q2

REPORT INFORMATION
  Report Type: 
  Country: None (occurrence: None)
  Receive Date: 20080618
  Receipt Date: 20080613
  Transmission Date: 20081010
  Serious: Yes (Death)
  Sender: FDA-Public Use
  Company Number: JP-BAYER-200811228BYL

PATIENT
  Age: 86 Year
  Sex: Male

DRUGS (2)
  1. CIPROXAN-I.V. [Suspect]
     Indication: PNEUMONIA
     Dosage: TOTAL DAILY DOSE: 600 MG  UNIT DOSE: 300 MG
     Route: 041
     Dates: start: 20071010, end: 20071020
  2. ALPROSTADIL [Concomitant]
     Dosage: TOTAL DAILY DOSE: 120 U
     Route: 041
     Dates: start: 20071009, end: 20071019

REACTIONS (1)
  - DISSEMINATED INTRAVASCULAR COAGULATION [None]
